FAERS Safety Report 9848252 (Version 2)
Quarter: 2014Q1

REPORT INFORMATION
  Report Type: Spontaneous
  Country: US (occurrence: None)
  Receive Date: 20131223
  Receipt Date: 20140328
  Transmission Date: 20141002
  Serious: Yes (Other)
  Sender: FDA-Public Use
  Company Number: 1000051014

PATIENT
  Age: 65 Year
  Sex: Female

DRUGS (6)
  1. LINZESS (LINACLOTIDE) (145 MICROGRAM, CAPSULES) [Suspect]
     Indication: CONSTIPATION
     Dosage: 145 MCG (145 MCG, 1 IN 1 D), ORAL
     Route: 048
     Dates: start: 20131007
  2. LAXATIVES NOS [Suspect]
     Dosage: DAILY (DAILY)
  3. PERCOCET (XYCODONE, ACETAMINOPHEN) (OXYCODONE, ACETAMINOPHEN)? [Concomitant]
  4. ACETAMINOHEN W/ CODEINE (ACETAMINOPHEN, CODEINE) (ACETAMINOPHEN, CODEINE)? [Concomitant]
  5. PRISTIQ (DESVENLAFAXINE SUCCINATE) (DESVENLAFAXINE SUCCINATE) [Concomitant]
  6. CLONAZEPAM (CLONAZEPAM) (CLONAZEPAM) [Concomitant]

REACTIONS (4)
  - Off label use [None]
  - Constipation [None]
  - Anal fissure [None]
  - Diarrhoea [None]
